FAERS Safety Report 11092387 (Version 1)
Quarter: 2015Q2

REPORT INFORMATION
  Report Type: Spontaneous
  Country: GB (occurrence: None)
  Receive Date: 20150504
  Receipt Date: 20150504
  Transmission Date: 20150821
  Serious: Yes (Death, Other)
  Sender: FDA-Public Use
  Company Number: GB2015GSK058611

PATIENT
  Age: 8 Year
  Sex: Female

DRUGS (3)
  1. ABACAVIR (ABACAVIR SULPHATE) UNKNOWN [Suspect]
     Active Substance: ABACAVIR
     Indication: HIV INFECTION
  2. EFAVIRENZ (EFAVIRENZ) UNKNOWN [Suspect]
     Active Substance: EFAVIRENZ
     Indication: HIV INFECTION
  3. LAMIVUDINE (LAMIVUDINE) UNKNOWN [Suspect]
     Active Substance: LAMIVUDINE
     Indication: HIV INFECTION

REACTIONS (8)
  - Multi-organ failure [None]
  - Hepatosplenomegaly [None]
  - Mycobacterium avium complex infection [None]
  - Immune reconstitution inflammatory syndrome [None]
  - Lymphadenopathy [None]
  - Tuberculosis [None]
  - General physical health deterioration [None]
  - Respiratory disorder [None]
